FAERS Safety Report 5788475-7 (Version None)
Quarter: 2008Q2

REPORT INFORMATION
  Report Type: 
  Country: None (occurrence: None)
  Receive Date: 20080626
  Receipt Date: 20080617
  Transmission Date: 20081010
  Serious: Yes (Disabling)
  Sender: FDA-Public Use
  Company Number: GB-RANBAXY-2008RR-16032

PATIENT

DRUGS (1)
  1. CIPROFLOXACIN [Suspect]
     Indication: EPIDIDYMITIS
     Dosage: 1000 MG, UNK
     Route: 048
     Dates: start: 20071020, end: 20071022

REACTIONS (36)
  - ABDOMINAL PAIN UPPER [None]
  - ARTHRALGIA [None]
  - BURNING SENSATION [None]
  - DERMATITIS CONTACT [None]
  - DIARRHOEA [None]
  - DIZZINESS [None]
  - DRY EYE [None]
  - DRY MOUTH [None]
  - DRY SKIN [None]
  - DYSGEUSIA [None]
  - DYSPHAGIA [None]
  - EAR PAIN [None]
  - FATIGUE [None]
  - FOOT DEFORMITY [None]
  - GASTROOESOPHAGEAL REFLUX DISEASE [None]
  - HEART RATE INCREASED [None]
  - HYPERACUSIS [None]
  - HYPOAESTHESIA [None]
  - INSOMNIA [None]
  - JOINT STIFFNESS [None]
  - MUSCLE TWITCHING [None]
  - MUSCULOSKELETAL STIFFNESS [None]
  - MYALGIA [None]
  - NERVOUSNESS [None]
  - NEURALGIA [None]
  - NIGHTMARE [None]
  - ONYCHOCLASIS [None]
  - PARAESTHESIA [None]
  - PETECHIAE [None]
  - PRURITUS GENERALISED [None]
  - SKIN WRINKLING [None]
  - TENDONITIS [None]
  - TENSION HEADACHE [None]
  - TINNITUS [None]
  - TONGUE BITING [None]
  - VISUAL DISTURBANCE [None]
